FAERS Safety Report 5015730-0 (Version None)
Quarter: 2006Q2

REPORT INFORMATION
  Report Type: 
  Country: None (occurrence: None)
  Receive Date: 20060526
  Receipt Date: 20060516
  Transmission Date: 20061013
  Serious: Yes (Death, Disabling, Other)
  Sender: FDA-Public Use
  Company Number: CIP06001035

PATIENT
  Age: 78 Year
  Sex: Female
  Weight: 88.4 kg

DRUGS (1)
  1. ACTONEL [Suspect]
     Indication: OSTEOPOROSIS POSTMENOPAUSAL
     Dosage: 35 MG ONCE WEEKLY, ORAL
     Route: 048
     Dates: start: 20050113, end: 20060502

REACTIONS (3)
  - CARDIOPULMONARY FAILURE [None]
  - FALL [None]
  - HIP FRACTURE [None]
